FAERS Safety Report 18022181 (Version 1)
Quarter: 2020Q3

REPORT INFORMATION
  Report Type: Spontaneous
  Country: CA (occurrence: CA)
  Receive Date: 20200714
  Receipt Date: 20200714
  Transmission Date: 20201103
  Serious: Yes (Hospitalization, Other)
  Sender: FDA-Public Use
  Company Number: CA-MYLANLABS-2020M1063711

PATIENT
  Age: 45 Year
  Sex: Male

DRUGS (10)
  1. LEVETIRACETAM. [Concomitant]
     Active Substance: LEVETIRACETAM
     Indication: STATUS EPILEPTICUS
     Dosage: 1500 MILLIGRAM, BID
  2. TOPIRAMATE. [Interacting]
     Active Substance: TOPIRAMATE
     Indication: SEIZURE
     Dosage: 400 MILLIGRAM, QD
  3. LEVETIRACETAM. [Concomitant]
     Active Substance: LEVETIRACETAM
     Indication: SEIZURE
  4. VALPROIC ACID. [Interacting]
     Active Substance: VALPROIC ACID
     Indication: SEIZURE
     Dosage: 750 MILLIGRAM
     Route: 048
  5. VALPROIC ACID. [Interacting]
     Active Substance: VALPROIC ACID
     Dosage: UNK
     Route: 048
  6. PHENYTOIN SODIUM. [Concomitant]
     Active Substance: PHENYTOIN SODIUM
     Indication: STATUS EPILEPTICUS
     Dosage: UNK
     Route: 042
  7. VALPROIC ACID. [Suspect]
     Active Substance: VALPROIC ACID
     Indication: STATUS EPILEPTICUS
     Dosage: UNK UNK, TID
     Route: 048
  8. TOPIRAMATE. [Interacting]
     Active Substance: TOPIRAMATE
     Indication: STATUS EPILEPTICUS
     Dosage: 200 MILLIGRAM, BID
     Route: 048
  9. PHENYTOIN SODIUM. [Concomitant]
     Active Substance: PHENYTOIN SODIUM
     Indication: SEIZURE
  10. CLONAZEPAM. [Concomitant]
     Active Substance: CLONAZEPAM
     Indication: SEIZURE PROPHYLAXIS
     Dosage: 1 MILLIGRAM, BID

REACTIONS (9)
  - Somnolence [Recovered/Resolved]
  - Confusional state [Recovered/Resolved]
  - Drug interaction [Recovered/Resolved]
  - Pyrexia [Recovered/Resolved]
  - Hyperammonaemia [Recovered/Resolved]
  - Agitation [Recovered/Resolved]
  - Tachypnoea [Recovered/Resolved]
  - Toxic encephalopathy [Recovered/Resolved]
  - Pneumonia aspiration [Recovered/Resolved]
